FAERS Safety Report 19040120 (Version 3)
Quarter: 2021Q2

REPORT INFORMATION
  Report Type: Spontaneous
  Country: IT (occurrence: IT)
  Receive Date: 20210323
  Receipt Date: 20210513
  Transmission Date: 20210717
  Serious: Yes (Life-Threatening, Hospitalization, Other)
  Sender: FDA-Public Use
  Company Number: IT-AUROBINDO-AUR-APL-2021-011328

PATIENT
  Age: 3 Month

DRUGS (3)
  1. FLECAINIDE [Suspect]
     Active Substance: FLECAINIDE
     Indication: ARRHYTHMIA PROPHYLAXIS
     Dosage: 3.5 MILLIGRAM/KILOGRAM, ONCE A DAY IN 3 DOSES
     Route: 065
     Dates: start: 2020, end: 2020
  2. PROPRANOLOL [Concomitant]
     Active Substance: PROPRANOLOL HYDROCHLORIDE
     Indication: ATRIAL TACHYCARDIA
     Dosage: 3 MILLIGRAM/KILOGRAM, ONCE A DAY DIVIDED IN 3 DOSES
     Route: 065
  3. FLECAINIDE [Suspect]
     Active Substance: FLECAINIDE
     Dosage: PARENTS RESULTED IN BOTH GIVING A DOSE TO THE INFANT
     Route: 065
     Dates: start: 2020, end: 2020

REACTIONS (15)
  - Incorrect dosage administered [Recovered/Resolved]
  - Electrocardiogram QRS complex prolonged [Recovered/Resolved]
  - Left ventricular dysfunction [Recovered/Resolved]
  - Blood lactate dehydrogenase increased [Unknown]
  - Supraventricular extrasystoles [Unknown]
  - Atrial tachycardia [Recovered/Resolved]
  - Ventricular dyskinesia [Recovered/Resolved]
  - Toxicity to various agents [Recovered/Resolved]
  - Accidental overdose [Recovered/Resolved]
  - Atrioventricular block first degree [Recovered/Resolved]
  - Blood creatine phosphokinase increased [Unknown]
  - Blood lactic acid increased [Unknown]
  - Somnolence [Recovering/Resolving]
  - Product communication issue [Recovered/Resolved]
  - Decreased appetite [Recovering/Resolving]

NARRATIVE: CASE EVENT DATE: 2020
